FAERS Safety Report 7328482-6 (Version None)
Quarter: 2011Q1

REPORT INFORMATION
  Report Type: 
  Country: None (occurrence: None)
  Receive Date: 20110303
  Receipt Date: 20110224
  Transmission Date: 20110831
  Serious: Yes (Other)
  Sender: FDA-Public Use
  Company Number: JP-TEVA-267038ISR

PATIENT
  Age: 69 Year
  Sex: Male

DRUGS (3)
  1. DEXAMETHASONE [Concomitant]
  2. CISPLATIN [Suspect]
     Indication: URETERIC CANCER
     Route: 041
     Dates: start: 20110206
  3. APREPITANT [Concomitant]

REACTIONS (1)
  - HYPERGLYCAEMIA [None]
